FAERS Safety Report 14254016 (Version 1)
Quarter: 2017Q4

REPORT INFORMATION
  Report Type: Spontaneous
  Country: US (occurrence: US)
  Receive Date: 20171206
  Receipt Date: 20171206
  Transmission Date: 20180321
  Serious: Yes (Life-Threatening, Hospitalization, Other)
  Sender: FDA-Public Use
  Company Number: US-ACCORD-061667

PATIENT
  Age: 72 Year
  Sex: Female

DRUGS (2)
  1. ACETYLSALICYLIC ACID [Concomitant]
     Active Substance: ASPIRIN
     Dosage: ASPIRIN DOSE WAS LOWERED TO 81 MG QD
  2. CLOPIDOGREL [Suspect]
     Active Substance: CLOPIDOGREL BISULFATE
     Indication: DEVICE RELATED THROMBOSIS

REACTIONS (3)
  - Transient ischaemic attack [Recovered/Resolved]
  - Device related thrombosis [Recovered/Resolved]
  - Drug ineffective [Unknown]
